FAERS Safety Report 9476167 (Version 1)
Quarter: 2013Q3

REPORT INFORMATION
  Report Type: Spontaneous
  Country: JP (occurrence: None)
  Receive Date: 20130821
  Receipt Date: 20130821
  Transmission Date: 20140515
  Serious: Yes (Other)
  Sender: FDA-Public Use
  Company Number: CO-OR-JP-2013-018

PATIENT
  Age: 62 Year
  Sex: Female

DRUGS (5)
  1. PREDNISOLONE -UKN STRENGTH/UNK FORMULATION (PREDNISOLONE) [Suspect]
     Indication: ASTHMA
  2. AMLODIPINE BESYLATE (AMLODIPINE BESYLATE) [Concomitant]
  3. LACTOBICILLUS CASEI (LACTOBACILLUS CASEI) [Concomitant]
  4. ALBUMIN TANNATE (ALBUMIN TANNATE) [Concomitant]
  5. BUTROPIUM BROMIDE (BUTROPIUM BROMIDE) [Concomitant]

REACTIONS (1)
  - Pneumatosis intestinalis [None]
